FAERS Safety Report 22678584 (Version 3)
Quarter: 2024Q1

REPORT INFORMATION
  Report Type: Spontaneous
  Country: JP (occurrence: JP)
  Receive Date: 20230706
  Receipt Date: 20240116
  Transmission Date: 20240409
  Serious: Yes (Death, Other)
  Sender: FDA-Public Use
  Company Number: JP-MSD-M2023-26455

PATIENT
  Age: 65 Year
  Sex: Female

DRUGS (5)
  1. KEYTRUDA [Suspect]
     Active Substance: PEMBROLIZUMAB
     Indication: Oesophageal carcinoma recurrent
     Dosage: 200 MILLIGRAM, Q3W
     Route: 041
     Dates: start: 20220427, end: 20220621
  2. CISPLATIN [Suspect]
     Active Substance: CISPLATIN
     Indication: Oesophageal carcinoma recurrent
     Dosage: 60 MILLIGRAM, 3 TIMES EVERY 3 WEEKS
     Route: 041
     Dates: start: 20220427, end: 2022
  3. CISPLATIN [Suspect]
     Active Substance: CISPLATIN
     Dosage: 40 MILLIGRAM, 3 TIMES EVERY 3 WEEKS
     Route: 041
     Dates: start: 20220524, end: 20220621
  4. FLUOROURACIL [Suspect]
     Active Substance: FLUOROURACIL
     Indication: Oesophageal carcinoma recurrent
     Dosage: 800 MILLIGRAM
     Route: 041
     Dates: start: 20220427, end: 2022
  5. FLUOROURACIL [Suspect]
     Active Substance: FLUOROURACIL
     Dosage: 600 MILLIGRAM
     Route: 041
     Dates: start: 20220524, end: 20220621

REACTIONS (2)
  - Cardiac failure [Fatal]
  - Decreased appetite [Unknown]

NARRATIVE: CASE EVENT DATE: 20220627
